FAERS Safety Report 4385892-7 (Version None)
Quarter: 2004Q2

REPORT INFORMATION
  Report Type: 
  Country: None (occurrence: None)
  Receive Date: 20040628
  Receipt Date: 20040614
  Transmission Date: 20050107
  Serious: Yes (Other)
  Sender: FDA-Public Use
  Company Number: 12343554

PATIENT
  Age: 38 Year
  Sex: Male

DRUGS (2)
  1. LAMIVUDINE [Suspect]
     Indication: HEPATITIS B
     Dosage: 100MG PER DAY
     Route: 048
     Dates: start: 20021021, end: 20030801
  2. GLIMEPIRIDE [Concomitant]
     Dates: start: 20021119

REACTIONS (1)
  - LIPASE INCREASED [None]
